FAERS Safety Report 7539929-4 (Version None)
Quarter: 2011Q2

REPORT INFORMATION
  Report Type: 
  Country: None (occurrence: None)
  Receive Date: 20110610
  Receipt Date: 20110601
  Transmission Date: 20111010
  Serious: Yes (Other)
  Sender: FDA-Public Use
  Company Number: BR-MPIJNJ-2011-02325

PATIENT

DRUGS (3)
  1. VELCADE [Suspect]
     Indication: MULTIPLE MYELOMA
     Dosage: 1 MG/KG, UNK
     Route: 065
     Dates: start: 20110501, end: 20110501
  2. SANDOSTATIN                        /00821001/ [Concomitant]
     Indication: ADENOMA BENIGN
  3. DEXAMETHASONE [Concomitant]
     Indication: MULTIPLE MYELOMA
     Dosage: 20 MG, UNK

REACTIONS (2)
  - VASCULITIS [None]
  - HAEMATURIA [None]
